FAERS Safety Report 11320220 (Version 1)
Quarter: 2015Q3

REPORT INFORMATION
  Report Type: Spontaneous
  Country: US (occurrence: None)
  Receive Date: 20150728
  Receipt Date: 20150728
  Transmission Date: 20151125
  Serious: Yes (Hospitalization)
  Sender: FDA-Public Use
  Company Number: None

PATIENT
  Age: 20 Year
  Sex: Male
  Weight: 112 kg

DRUGS (5)
  1. DAUNORUBICIN [Suspect]
     Active Substance: DAUNORUBICIN
     Dates: start: 20150702
  2. PREDNISONE. [Suspect]
     Active Substance: PREDNISONE
     Dates: start: 20150630
  3. METHOTREXATE [Suspect]
     Active Substance: METHOTREXATE
     Dates: start: 20150626
  4. CYTARABINE. [Suspect]
     Active Substance: CYTARABINE
     Dates: start: 20150619
  5. ONCASPAR [Suspect]
     Active Substance: PEGASPARGASE
     Dates: start: 20150623

REACTIONS (4)
  - Septic shock [None]
  - Hepatorenal syndrome [None]
  - Pulmonary mass [None]
  - Venoocclusive disease [None]

NARRATIVE: CASE EVENT DATE: 20150706
